FAERS Safety Report 11301597 (Version 1)
Quarter: 2015Q3

REPORT INFORMATION
  Report Type: Spontaneous
  Country: US (occurrence: US)
  Receive Date: 20150722
  Receipt Date: 20150722
  Transmission Date: 20151125
  Serious: No
  Sender: FDA-Public Use
  Company Number: US-ELI_LILLY_AND_COMPANY-US200906001562

PATIENT
  Age: 13 Year
  Sex: Male

DRUGS (1)
  1. HUMATROPE [Suspect]
     Active Substance: SOMATROPIN

REACTIONS (4)
  - Skin disorder [Not Recovered/Not Resolved]
  - Injection site swelling [Unknown]
  - Pain in extremity [Unknown]
  - Injection site rash [Unknown]

NARRATIVE: CASE EVENT DATE: 200908
